FAERS Safety Report 8773821 (Version 2)
Quarter: 2012Q4

REPORT INFORMATION
  Report Type: Report from Study
  Country: US (occurrence: US)
  Receive Date: 20120907
  Receipt Date: 20120924
  Transmission Date: 20130627
  Serious: Yes (Death, Other)
  Sender: FDA-Public Use
  Company Number: US-CELGENEUS-163-21880-12090439

PATIENT

DRUGS (33)
  1. REVLIMID [Suspect]
     Indication: MULTIPLE MYELOMA
     Dosage: 10 Milligram
     Route: 048
     Dates: start: 20110921, end: 20111005
  2. DEXAMETHASONE [Suspect]
     Indication: MULTIPLE MYELOMA
     Dosage: 8 Milligram
     Route: 041
     Dates: start: 20110921, end: 20111005
  3. DEXAMETHASONE [Suspect]
     Dosage: 28 Milligram
     Route: 048
     Dates: start: 20111005, end: 20111005
  4. ELOTUZUMAB [Suspect]
     Indication: MULTIPLE MYELOMA
     Dosage: 268.2 Milligram
     Route: 041
     Dates: start: 20110921, end: 20111005
  5. NORMAL SALINE [Concomitant]
     Indication: ADVERSE EVENT
     Route: 065
     Dates: start: 20111010, end: 20111011
  6. MORPHINE [Concomitant]
     Indication: DRUG USE FOR UNKNOWN INDICATION
     Route: 065
     Dates: start: 20111012, end: 20111013
  7. SOLUMEDROL [Concomitant]
     Indication: ADVERSE EVENT
     Route: 065
     Dates: start: 20111012, end: 20111013
  8. LASIX [Concomitant]
     Indication: ADVERSE EVENT
     Route: 065
     Dates: start: 20111011, end: 20111014
  9. PACKED RED BLOOD CELLS [Concomitant]
     Indication: ADVERSE EVENT
     Route: 065
     Dates: start: 20111009, end: 20111014
  10. DEXTROSA [Concomitant]
     Indication: DRUG USE FOR UNKNOWN INDICATION
     Route: 065
     Dates: start: 20111011, end: 20111014
  11. ZOSYN [Concomitant]
     Indication: ADVERSE EVENT
     Route: 065
     Dates: start: 20111011, end: 20111012
  12. INTROPIN [Concomitant]
     Indication: ADVERSE EVENT
     Route: 065
     Dates: start: 20111013, end: 20111014
  13. GARAMYCIN [Concomitant]
     Indication: ADVERSE EVENT
     Route: 065
     Dates: start: 20111012, end: 20111012
  14. PRE-PROTEIN [Concomitant]
     Indication: DRUG USE FOR UNKNOWN INDICATION
     Route: 065
     Dates: start: 20111011, end: 20111013
  15. PROTONIX [Concomitant]
     Indication: DRUG USE FOR UNKNOWN INDICATION
     Route: 065
     Dates: start: 20111010, end: 20111014
  16. SOLUCORTEF [Concomitant]
     Indication: ADVERSE EVENT
     Route: 065
     Dates: start: 20111013, end: 20111014
  17. POTASSIUM CHLORIDE [Concomitant]
     Indication: DRUG USE FOR UNKNOWN INDICATION
     Route: 065
     Dates: start: 20111012, end: 20111014
  18. MAGNESIUM SULFATE [Concomitant]
     Indication: DRUG USE FOR UNKNOWN INDICATION
     Route: 065
     Dates: start: 20111012, end: 20111012
  19. LEVOPHED [Concomitant]
     Indication: ADVERSE EVENT
     Route: 065
     Dates: start: 20111013, end: 20111014
  20. SODIUM BICARBONATE [Concomitant]
     Indication: DRUG USE FOR UNKNOWN INDICATION
     Route: 065
     Dates: start: 20111012, end: 20111014
  21. CALCIUM GLUCONATE [Concomitant]
     Indication: DRUG USE FOR UNKNOWN INDICATION
     Route: 065
     Dates: start: 20111011, end: 20111013
  22. EPINEPHRINE [Concomitant]
     Indication: ADVERSE EVENT
     Route: 065
     Dates: start: 20111014, end: 20111014
  23. ATROPINA [Concomitant]
     Indication: ADVERSE EVENT
     Route: 065
     Dates: start: 20111014, end: 20111014
  24. PULMICORT [Concomitant]
     Indication: ADVERSE EVENT
     Route: 065
     Dates: start: 20111013, end: 20111014
  25. ATROVENT [Concomitant]
     Indication: ADVERSE EVENT
     Route: 065
     Dates: start: 20111012, end: 20111014
  26. ACETAMINOPHEN [Concomitant]
     Indication: ADVERSE EVENT
     Route: 065
     Dates: start: 20111010, end: 20111010
  27. PROCRIT [Concomitant]
     Indication: DRUG USE FOR UNKNOWN INDICATION
     Route: 065
     Dates: start: 20111006, end: 20111014
  28. ZOFRAN ODT [Concomitant]
     Indication: DRUG USE FOR UNKNOWN INDICATION
     Route: 065
     Dates: start: 20110929, end: 20111014
  29. CEFEPIME [Concomitant]
     Indication: ADVERSE EVENT
     Route: 065
     Dates: start: 20111012, end: 20111014
  30. CLEOCIN [Concomitant]
     Indication: ADVERSE EVENT
     Route: 065
     Dates: start: 20111012, end: 20111014
  31. LOSARTAN/HCTZ [Concomitant]
     Indication: DRUG USE FOR UNKNOWN INDICATION
     Route: 065
     Dates: start: 20110926, end: 20111014
  32. METOPROLOL [Concomitant]
     Indication: DRUG USE FOR UNKNOWN INDICATION
     Route: 065
     Dates: start: 20000101, end: 20111014
  33. DECADRON [Concomitant]
     Indication: DRUG USE FOR UNKNOWN INDICATION
     Route: 065
     Dates: start: 20111010, end: 20111013

REACTIONS (4)
  - Renal failure acute [Fatal]
  - Acute respiratory failure [Fatal]
  - Pneumonia [Unknown]
  - Sepsis [Unknown]
